FAERS Safety Report 5209043-1 (Version None)
Quarter: 2007Q1

REPORT INFORMATION
  Report Type: 
  Country: None (occurrence: None)
  Receive Date: 20070116
  Receipt Date: 20070112
  Transmission Date: 20070707
  Serious: Yes (Disabling, Other)
  Sender: FDA-Public Use
  Company Number: 2007UW00644

PATIENT
  Age: 76 Year
  Sex: Female
  Weight: 80 kg

DRUGS (2)
  1. CRESTOR [Suspect]
     Indication: HYPERCHOLESTEROLAEMIA
     Route: 048
     Dates: start: 20060101
  2. VERAPAMIL CLORIDRATE [Concomitant]
     Indication: HYPERTENSION
     Route: 048
     Dates: start: 19670101

REACTIONS (1)
  - LOWER LIMB FRACTURE [None]
